FAERS Safety Report 7929524-7 (Version None)
Quarter: 2011Q4

REPORT INFORMATION
  Report Type: 
  Country: None (occurrence: None)
  Receive Date: 20111121
  Receipt Date: 20111107
  Transmission Date: 20120403
  Serious: Yes (Other)
  Sender: FDA-Public Use
  Company Number: US-ELI_LILLY_AND_COMPANY-US201108004573

PATIENT
  Sex: Female

DRUGS (1)
  1. ZYPREXA [Suspect]
     Dosage: UNK
     Dates: start: 20010101

REACTIONS (20)
  - TRANSIENT ISCHAEMIC ATTACK [None]
  - DIABETES MELLITUS [None]
  - CONVULSION [None]
  - HYPERTHYROIDISM [None]
  - DIARRHOEA [None]
  - HYPERLIPIDAEMIA [None]
  - DRUG WITHDRAWAL SYNDROME [None]
  - HYPOAESTHESIA [None]
  - SUICIDAL IDEATION [None]
  - INTESTINAL OBSTRUCTION [None]
  - MOOD SWINGS [None]
  - VOMITING [None]
  - WEIGHT INCREASED [None]
  - GLAUCOMA [None]
  - MALAISE [None]
  - HYPOTENSION [None]
  - HYPERTENSION [None]
  - HYPERGLYCAEMIA [None]
  - WEIGHT DECREASED [None]
  - INTENTIONAL DRUG MISUSE [None]
